FAERS Safety Report 24559862 (Version 1)
Quarter: 2024Q4

REPORT INFORMATION
  Report Type: Spontaneous
  Country: GB (occurrence: GB)
  Receive Date: 20241029
  Receipt Date: 20241029
  Transmission Date: 20250114
  Serious: Yes (Life-Threatening, Hospitalization, Other)
  Sender: TEVA
  Company Number: None

PATIENT
  Age: 69 Year
  Sex: Male

DRUGS (11)
  1. CAPECITABINE [Suspect]
     Active Substance: CAPECITABINE
     Indication: Rectal cancer
     Dosage: ON RADIOTHERAPY TREATMENT DAYS ONLY;
     Route: 065
     Dates: start: 20240510
  2. DAPAGLIFLOZIN [Concomitant]
     Active Substance: DAPAGLIFLOZIN
  3. GLICLAZIDE [Concomitant]
     Active Substance: GLICLAZIDE
  4. SITAGLIPTIN [Concomitant]
     Active Substance: SITAGLIPTIN
  5. FINASTERIDE [Concomitant]
     Active Substance: FINASTERIDE
  6. AMITRIPTYLINE [Concomitant]
     Active Substance: AMITRIPTYLINE
  7. RIVAROXABAN [Concomitant]
     Active Substance: RIVAROXABAN
  8. RAMIPRIL [Concomitant]
     Active Substance: RAMIPRIL
  9. MORPHINE [Concomitant]
     Active Substance: MORPHINE
  10. MITOMYCIN [Concomitant]
     Active Substance: MITOMYCIN
     Indication: Rectal cancer
     Dates: start: 20240510
  11. SILDENAFIL [Concomitant]
     Active Substance: SILDENAFIL

REACTIONS (1)
  - Acute myocardial infarction [Recovering/Resolving]

NARRATIVE: CASE EVENT DATE: 20241022
